FAERS Safety Report 7938512-6 (Version None)
Quarter: 2011Q4

REPORT INFORMATION
  Report Type: 
  Country: None (occurrence: None)
  Receive Date: 20111123
  Receipt Date: 20111109
  Transmission Date: 20120403
  Serious: Yes (Death, Hospitalization, Other)
  Sender: FDA-Public Use
  Company Number: JP-ROCHE-731416

PATIENT
  Sex: Male

DRUGS (14)
  1. PREDNISOLONE [Concomitant]
     Route: 048
  2. ISOSORBIDE MONONITRATE [Concomitant]
     Route: 048
  3. ISONIAZID [Concomitant]
     Route: 048
  4. RISEDRONATE SODIUM [Concomitant]
     Route: 048
  5. RHEUMATREX [Concomitant]
     Route: 048
  6. CYTOTEC [Concomitant]
     Route: 048
  7. LORCAM [Concomitant]
     Route: 048
  8. LENDORMIN [Concomitant]
     Route: 048
  9. AMLODIPINE [Concomitant]
     Route: 048
  10. ASPIRIN [Concomitant]
     Route: 048
  11. FOLIC ACID [Concomitant]
     Route: 048
  12. SULFAMETHOXAZOLE AND TRIMETHOPRIM [Concomitant]
     Route: 048
  13. ACTEMRA [Suspect]
     Indication: RHEUMATOID ARTHRITIS
     Route: 041
     Dates: start: 20090128, end: 20090128
  14. DILTIAZEM HCL [Concomitant]
     Route: 048

REACTIONS (4)
  - HENOCH-SCHONLEIN PURPURA [None]
  - INTESTINAL OBSTRUCTION [None]
  - MELAENA [None]
  - SEPSIS [None]
